FAERS Safety Report 6315532-9 (Version None)
Quarter: 2009Q3

REPORT INFORMATION
  Report Type: 
  Country: None (occurrence: None)
  Receive Date: 20090819
  Receipt Date: 20090813
  Transmission Date: 20100115
  Serious: Yes (Hospitalization, Other)
  Sender: FDA-Public Use
  Company Number: CA-PFIZER INC-2009243946

PATIENT
  Age: 71 Year

DRUGS (7)
  1. LIPITOR [Suspect]
     Indication: BLOOD CHOLESTEROL
     Dosage: 20 MG, UNK
     Route: 048
     Dates: start: 20040101, end: 20090706
  2. AMIODARONE [Interacting]
  3. WARFARIN [Interacting]
     Dosage: 5 MG, UNK
     Route: 048
  4. ALLOPURINOL [Concomitant]
     Dosage: 300 MG, UNK
     Route: 048
  5. RAMIPRIL [Concomitant]
     Dosage: 5 MG, UNK
     Route: 048
  6. PARIET [Concomitant]
     Dosage: 20 MG, UNK
     Route: 048
  7. METOPROLOL [Concomitant]
     Dosage: 50 MG, 2X/DAY
     Route: 048

REACTIONS (4)
  - ATRIAL FIBRILLATION [None]
  - BLOOD CREATINE PHOSPHOKINASE INCREASED [None]
  - DRUG INTERACTION [None]
  - MYALGIA [None]
